FAERS Safety Report 6397516-8 (Version None)
Quarter: 2009Q4

REPORT INFORMATION
  Report Type: 
  Country: None (occurrence: None)
  Receive Date: 20091012
  Receipt Date: 20091006
  Transmission Date: 20100525
  Serious: Yes (Death)
  Sender: FDA-Public Use
  Company Number: JP-BAYER-200913749BYL

PATIENT
  Age: 90 Year
  Sex: Female

DRUGS (1)
  1. MAGNEVIST [Suspect]
     Indication: NUCLEAR MAGNETIC RESONANCE IMAGING
     Dosage: 0.2ML/KG( DOUBLE DOSE)
     Route: 042
     Dates: start: 20090918, end: 20090918

REACTIONS (1)
  - CARDIO-RESPIRATORY ARREST [None]
